FAERS Safety Report 6919426-7 (Version None)
Quarter: 2010Q3

REPORT INFORMATION
  Report Type: 
  Country: None (occurrence: None)
  Receive Date: 20100811
  Receipt Date: 20100810
  Transmission Date: 20110219
  Serious: Yes (Other)
  Sender: FDA-Public Use
  Company Number: B0412659A

PATIENT
  Age: 42 Year
  Sex: Male

DRUGS (1)
  1. LAMIVUDINE-HBV [Suspect]
     Dosage: 100MG PER DAY
     Route: 048
     Dates: start: 19960101

REACTIONS (3)
  - BACK PAIN [None]
  - NEPHROLITHIASIS [None]
  - RED BLOOD CELLS URINE POSITIVE [None]
